FAERS Safety Report 21041123 (Version 1)
Quarter: 2022Q3

REPORT INFORMATION
  Report Type: Spontaneous
  Country: DE (occurrence: DE)
  Receive Date: 20220705
  Receipt Date: 20220705
  Transmission Date: 20221027
  Serious: Yes (Life-Threatening, Other)
  Sender: FDA-Public Use
  Company Number: DE-DCGMA-22198633

PATIENT
  Age: 75 Year
  Sex: Female

DRUGS (8)
  1. PROLIA [Suspect]
     Active Substance: DENOSUMAB
     Indication: Hypercalcaemia
     Dosage: 60 MILLIGRAM
     Route: 058
  2. SPIRONOLACTONE [Concomitant]
     Active Substance: SPIRONOLACTONE
  3. DOMPERIDONE [Concomitant]
     Active Substance: DOMPERIDONE
  4. FENTANYL [Concomitant]
     Active Substance: FENTANYL
  5. METOPROLOL [Concomitant]
     Active Substance: METOPROLOL
  6. RAMIPRIL [Concomitant]
     Active Substance: RAMIPRIL
  7. LEVETIRACETAM [Concomitant]
     Active Substance: LEVETIRACETAM
  8. ESOMEPRAZOLE [Concomitant]
     Active Substance: ESOMEPRAZOLE

REACTIONS (1)
  - Thrombocytopenia [Unknown]

NARRATIVE: CASE EVENT DATE: 20220607
